FAERS Safety Report 20578597 (Version 1)
Quarter: 2022Q1

REPORT INFORMATION
  Report Type: Report from Study
  Country: CZ (occurrence: CZ)
  Receive Date: 20220310
  Receipt Date: 20220310
  Transmission Date: 20220423
  Serious: Yes (Other)
  Sender: FDA-Public Use
  Company Number: CZ-MYLANLABS-2022M1018546

PATIENT
  Age: 62 Year
  Sex: Female

DRUGS (3)
  1. HULIO [Suspect]
     Active Substance: ADALIMUMAB-FKJP
     Indication: Rheumatoid arthritis
     Dosage: UNK, BIMONTHLY (TWICE A MONTH)
     Route: 058
     Dates: start: 20190902
  2. PREDNISOLONE [Concomitant]
     Active Substance: PREDNISOLONE
     Dosage: 5 MILLIGRAM, QD
     Dates: start: 20170605
  3. METHOTREXATE [Concomitant]
     Active Substance: METHOTREXATE
     Dosage: 10 MILLIGRAM, QW
     Dates: start: 20210322

REACTIONS (2)
  - Pyelonephritis [Recovering/Resolving]
  - Therapy interrupted [Unknown]

NARRATIVE: CASE EVENT DATE: 20220215
